FAERS Safety Report 9527724 (Version 1)
Quarter: 2013Q3

REPORT INFORMATION
  Report Type: Spontaneous
  Country: US (occurrence: US)
  Receive Date: 20130917
  Receipt Date: 20130917
  Transmission Date: 20140515
  Serious: No
  Sender: FDA-Public Use
  Company Number: US-TEVA-432378USA

PATIENT
  Age: 34 Year
  Sex: Female
  Weight: 60.38 kg

DRUGS (3)
  1. PARAGARD 380A [Suspect]
     Indication: CONTRACEPTION
     Route: 015
     Dates: start: 20130201, end: 20130909
  2. LIPITOR [Concomitant]
  3. CLARITIN [Concomitant]

REACTIONS (3)
  - Device expulsion [Recovered/Resolved]
  - Dysmenorrhoea [Unknown]
  - Pelvic pain [Unknown]
